FAERS Safety Report 9777506 (Version 1)
Quarter: 2013Q4

REPORT INFORMATION
  Report Type: Spontaneous
  Country: PA (occurrence: PA)
  Receive Date: 20131222
  Receipt Date: 20131222
  Transmission Date: 20140711
  Serious: Yes (Other)
  Sender: FDA-Public Use
  Company Number: PHHY2013PA146574

PATIENT
  Sex: Male

DRUGS (2)
  1. AFINITOR [Suspect]
     Indication: RENAL CELL CARCINOMA
     Dosage: 10 MG, QD
     Route: 048
  2. AFINITOR [Suspect]
     Dosage: 10 MG, Q48H
     Route: 048
     Dates: start: 201309, end: 20131112

REACTIONS (6)
  - Scratch [Recovering/Resolving]
  - Skin ulcer [Recovering/Resolving]
  - Skin exfoliation [Recovering/Resolving]
  - Rash erythematous [Recovering/Resolving]
  - Pruritus [Recovering/Resolving]
  - Bicytopenia [Recovered/Resolved]
